FAERS Safety Report 11276624 (Version 2)
Quarter: 2018Q1

REPORT INFORMATION
  Report Type: Spontaneous
  Country: JP (occurrence: JP)
  Receive Date: 20150716
  Receipt Date: 20180108
  Transmission Date: 20180508
  Serious: Yes (Death)
  Sender: FDA-Public Use
  Company Number: JP-PFIZER INC-2015236292

PATIENT
  Age: 71 Year
  Sex: Female

DRUGS (1)
  1. SOLU-MEDROL [Suspect]
     Active Substance: METHYLPREDNISOLONE SODIUM SUCCINATE
     Indication: TOXIC EPIDERMAL NECROLYSIS
     Dosage: 1000 MG, DAILY
     Route: 042

REACTIONS (1)
  - Pancreatitis acute [Fatal]
